FAERS Safety Report 6334936-1 (Version None)
Quarter: 2009Q3

REPORT INFORMATION
  Report Type: 
  Country: None (occurrence: None)
  Receive Date: 20090827
  Receipt Date: 20090807
  Transmission Date: 20100115
  Serious: Yes (Hospitalization)
  Sender: FDA-Public Use
  Company Number: 2009-189399-NL

PATIENT
  Age: 23 Year
  Sex: Female
  Weight: 65.8 kg

DRUGS (2)
  1. NUVARING [Suspect]
     Indication: CONTRACEPTION
     Route: 067
     Dates: start: 20060116, end: 20060301
  2. TYLENOL (CAPLET) [Concomitant]

REACTIONS (12)
  - BACK PAIN [None]
  - CYANOSIS [None]
  - EJECTION FRACTION DECREASED [None]
  - FALL [None]
  - FEELING ABNORMAL [None]
  - FLANK PAIN [None]
  - INFERIOR VENA CAVA DILATATION [None]
  - LOSS OF CONSCIOUSNESS [None]
  - PNEUMONIA STREPTOCOCCAL [None]
  - PULMONARY EMBOLISM [None]
  - RIGHT ATRIAL DILATATION [None]
  - RIGHT VENTRICLE OUTFLOW TRACT OBSTRUCTION [None]
